FAERS Safety Report 6701220-3 (Version None)
Quarter: 2010Q2

REPORT INFORMATION
  Report Type: 
  Country: None (occurrence: None)
  Receive Date: 20100427
  Receipt Date: 20100412
  Transmission Date: 20101027
  Serious: Yes (Hospitalization)
  Sender: FDA-Public Use
  Company Number: 2010-0575

PATIENT
  Age: 77 Year
  Sex: Female

DRUGS (8)
  1. APO-GO PFS (APO-GO) (APOMORPHINE HYDROCHLORIDE) (APOMORPHINE HYDROCHLO [Suspect]
     Indication: DRUG USE FOR UNKNOWN INDICATION
     Dosage: 6 MG/HOURO 14 HOURS/DAY, SUBCUTANEOUS
     Route: 058
     Dates: start: 20081001
  2. PANTOZOL 20 (PANTOPRAZOLE) [Concomitant]
  3. CLOZAPINE [Concomitant]
  4. LECOMP RETARD (SINEMET) [Concomitant]
  5. ENAHEXAL (ENALAPRIL) [Concomitant]
  6. ASPIRIN [Concomitant]
  7. MADOPAR LT (MADOPAR) [Concomitant]
  8. ISISCOM (SINEMET) [Concomitant]

REACTIONS (3)
  - FLUID INTAKE REDUCED [None]
  - HYPOKALAEMIA [None]
  - URINARY TRACT INFECTION [None]
